FAERS Safety Report 7571109-9 (Version None)
Quarter: 2011Q2

REPORT INFORMATION
  Report Type: 
  Country: None (occurrence: None)
  Receive Date: 20110624
  Receipt Date: 20110616
  Transmission Date: 20111010
  Serious: Yes (Death)
  Sender: FDA-Public Use
  Company Number: TR-ACTELION-A-CH2011-50365

PATIENT
  Sex: Female
  Weight: 65 kg

DRUGS (1)
  1. TRACLEER [Suspect]
     Indication: PULMONARY ARTERIAL HYPERTENSION
     Dosage: UNK , UNK
     Route: 048

REACTIONS (3)
  - SEPTIC SHOCK [None]
  - SYSTEMIC SCLEROSIS [None]
  - LUNG INFECTION [None]
